FAERS Safety Report 23274867 (Version 10)
Quarter: 2025Q4

REPORT INFORMATION
  Report Type: Spontaneous
  Country: CA (occurrence: CA)
  Receive Date: 20231208
  Receipt Date: 20251018
  Transmission Date: 20260118
  Serious: Yes (Other)
  Sender: CELLTRION
  Company Number: CA-CELLTRION INC.-2022CA015422

PATIENT

DRUGS (76)
  1. INFLIXIMAB [Suspect]
     Active Substance: INFLIXIMAB
     Indication: Colitis ulcerative
     Dosage: 5 MG/KG
     Route: 042
  2. INFLIXIMAB [Suspect]
     Active Substance: INFLIXIMAB
     Dosage: 510 MILLIGRAM
     Route: 042
  3. INFLIXIMAB [Suspect]
     Active Substance: INFLIXIMAB
     Dosage: 520 MILLIGRAM
     Route: 042
  4. INFLIXIMAB [Suspect]
     Active Substance: INFLIXIMAB
     Dosage: 490 MILLIGRAM
     Route: 042
  5. INFLIXIMAB [Suspect]
     Active Substance: INFLIXIMAB
     Dosage: 485 MILLIGRAM
     Route: 042
  6. INFLIXIMAB [Suspect]
     Active Substance: INFLIXIMAB
     Dosage: 5 MG/KG
     Route: 042
  7. INFLIXIMAB [Suspect]
     Active Substance: INFLIXIMAB
     Dosage: 5 MG/KG
     Route: 042
  8. INFLIXIMAB [Suspect]
     Active Substance: INFLIXIMAB
     Dosage: 5 MG/KG
     Route: 042
  9. INFLIXIMAB [Suspect]
     Active Substance: INFLIXIMAB
     Dosage: 5 MG/KG
     Route: 042
  10. INFLIXIMAB [Suspect]
     Active Substance: INFLIXIMAB
     Dosage: 5 MG/KG
     Route: 042
  11. INFLIXIMAB [Suspect]
     Active Substance: INFLIXIMAB
     Dosage: 455 MILLIGRAM
     Route: 042
  12. INFLIXIMAB [Suspect]
     Active Substance: INFLIXIMAB
     Dosage: 445 MILLIGRAM
     Route: 042
  13. INFLIXIMAB [Suspect]
     Active Substance: INFLIXIMAB
     Dosage: 440 MILLIGRAM
     Route: 042
  14. INFLIXIMAB [Suspect]
     Active Substance: INFLIXIMAB
     Dosage: 440 MILLIGRAM
     Route: 042
  15. INFLIXIMAB [Suspect]
     Active Substance: INFLIXIMAB
     Dosage: 5 MG/KG
     Route: 042
  16. INFLIXIMAB [Suspect]
     Active Substance: INFLIXIMAB
     Dosage: 5 MG/KG
     Route: 042
  17. INFLIXIMAB [Suspect]
     Active Substance: INFLIXIMAB
     Dosage: 5 MG/KG
     Route: 042
  18. INFLIXIMAB [Suspect]
     Active Substance: INFLIXIMAB
     Dosage: 5 MG/KG
     Route: 042
  19. INFLIXIMAB [Suspect]
     Active Substance: INFLIXIMAB
     Dosage: 5 MG/KG
     Route: 042
  20. INFLIXIMAB [Suspect]
     Active Substance: INFLIXIMAB
     Dosage: 5 MG/KG
     Route: 042
  21. INFLIXIMAB [Suspect]
     Active Substance: INFLIXIMAB
     Dosage: 5 MG/KG
     Route: 042
  22. INFLECTRA [Suspect]
     Active Substance: INFLIXIMAB-DYYB
     Indication: Colitis ulcerative
     Dosage: 5 MG/KG, 0, 2, 6, THEN EVERY 8 WEEKS
     Dates: start: 20220817
  23. INFLECTRA [Suspect]
     Active Substance: INFLIXIMAB-DYYB
     Dosage: 5 MG/KG, 0, 2, 6, THEN EVERY 8 WEEKS
     Dates: start: 20220817, end: 20230303
  24. INFLECTRA [Suspect]
     Active Substance: INFLIXIMAB-DYYB
     Dosage: 5 MG/KG, 0, 2, 6, THEN EVERY 8 WEEKS
     Dates: start: 20220831
  25. INFLECTRA [Suspect]
     Active Substance: INFLIXIMAB-DYYB
     Dosage: 5 MG/KG, 0, 2, 6, THEN EVERY 8 WEEKS
     Dates: start: 20220928
  26. INFLECTRA [Suspect]
     Active Substance: INFLIXIMAB-DYYB
     Dosage: 5 MG/KG, 0, 2, 6, THEN EVERY 8 WEEKS
     Dates: start: 20221110
  27. INFLECTRA [Suspect]
     Active Substance: INFLIXIMAB-DYYB
     Dosage: 5 MG/KG, 0, 2, 6, THEN EVERY 8 WEEKS
     Dates: start: 20230104
  28. INFLECTRA [Suspect]
     Active Substance: INFLIXIMAB-DYYB
     Dosage: 5 MG/KG, 0, 2, 6, THEN EVERY 8 WEEKS
     Dates: start: 20230303
  29. INFLECTRA [Suspect]
     Active Substance: INFLIXIMAB-DYYB
     Dosage: 440 MG (5 MG/KG), EVERY 6 WEEKS
     Dates: start: 20230414
  30. INFLECTRA [Suspect]
     Active Substance: INFLIXIMAB-DYYB
     Dosage: 440 MG (5 MG/KG), EVERY 6 WEEKS
     Dates: start: 20230524
  31. INFLECTRA [Suspect]
     Active Substance: INFLIXIMAB-DYYB
     Dosage: 445 MG (5 MG/KG), EVERY 6 WEEKS
     Dates: start: 20230707
  32. INFLECTRA [Suspect]
     Active Substance: INFLIXIMAB-DYYB
     Dosage: 455 MG (5MG/KG), EVERY 7 WEEKS
     Dates: start: 20230823
  33. INFLECTRA [Suspect]
     Active Substance: INFLIXIMAB-DYYB
     Dosage: 470 MG (5 MG/KG), AFTER 7 WEEKS
     Dates: start: 20231011
  34. INFLECTRA [Suspect]
     Active Substance: INFLIXIMAB-DYYB
     Dosage: 480 MG (5 MG/KG), AFTER 7 WEEKS
     Dates: start: 20231129
  35. INFLECTRA [Suspect]
     Active Substance: INFLIXIMAB-DYYB
     Dosage: 480MG (5 MG/KG), EVERY 7 WEEKS
     Dates: start: 20240117
  36. INFLECTRA [Suspect]
     Active Substance: INFLIXIMAB-DYYB
     Dosage: 490 MG (5 MG/KG), EVERY 7 WEEKS
     Dates: start: 20240308
  37. INFLECTRA [Suspect]
     Active Substance: INFLIXIMAB-DYYB
     Dosage: 5 MG/KG, EVERY 7 WEEKS
     Dates: start: 20240802
  38. INFLECTRA [Suspect]
     Active Substance: INFLIXIMAB-DYYB
     Dosage: 485 MG (5MG/KG), EVERY 7 WEEKS
     Dates: start: 20240925
  39. INFLECTRA [Suspect]
     Active Substance: INFLIXIMAB-DYYB
     Dosage: 490 MG, AFTER 7 WEEKS AND 5 DAYS
     Dates: start: 20241118
  40. INFLECTRA [Suspect]
     Active Substance: INFLIXIMAB-DYYB
     Dosage: 5 MG/KG, EVERY 7 WEEKS
     Dates: start: 20250103
  41. INFLECTRA [Suspect]
     Active Substance: INFLIXIMAB-DYYB
     Dosage: 510 MG, AFTER 6 WEEKS AND 5 DAYS
     Dates: start: 20250219
  42. INFLECTRA [Suspect]
     Active Substance: INFLIXIMAB-DYYB
     Dosage: 520 MG, AFTER 7 WEEKS
     Dates: start: 20250411
  43. CALCIUM [Concomitant]
     Active Substance: CALCIUM
     Dosage: UNK
  44. CALCIUM [Concomitant]
     Active Substance: CALCIUM
     Dosage: 1 DF
  45. CYMBALTA [Concomitant]
     Active Substance: DULOXETINE HYDROCHLORIDE
     Dosage: UNK
  46. CYMBALTA [Concomitant]
     Active Substance: DULOXETINE HYDROCHLORIDE
     Dosage: 1 DF
  47. DEXILANT [Concomitant]
     Active Substance: DEXLANSOPRAZOLE
     Dosage: UNK
  48. DEXILANT [Concomitant]
     Active Substance: DEXLANSOPRAZOLE
     Dosage: 1 DF
  49. IRBESARTAN [Concomitant]
     Active Substance: IRBESARTAN
     Dosage: UNK
  50. IRBESARTAN [Concomitant]
     Active Substance: IRBESARTAN
     Dosage: 1 DF
  51. MESALAMINE [Concomitant]
     Active Substance: MESALAMINE
     Dosage: UNK
  52. MESALAMINE [Concomitant]
     Active Substance: MESALAMINE
     Dosage: 1 DF
  53. MUPIROCIN [Concomitant]
     Active Substance: MUPIROCIN
     Dosage: 1 DF, 2%
  54. NABILONE [Concomitant]
     Active Substance: NABILONE
     Dosage: UNK
  55. NABILONE [Concomitant]
     Active Substance: NABILONE
     Dosage: 1 DF
     Dates: end: 20230118
  56. POLYETHYLENE GLYCOL 3350\POTASSIUM CHLORIDE\SODIUM BICARBONATE\SODIUM [Concomitant]
     Active Substance: POLYETHYLENE GLYCOL 3350\POTASSIUM CHLORIDE\SODIUM BICARBONATE\SODIUM CHLORIDE\SODIUM SULFATE
     Dosage: UNK
  57. POLYETHYLENE GLYCOL 3350\POTASSIUM CHLORIDE\SODIUM BICARBONATE\SODIUM [Concomitant]
     Active Substance: POLYETHYLENE GLYCOL 3350\POTASSIUM CHLORIDE\SODIUM BICARBONATE\SODIUM CHLORIDE\SODIUM SULFATE
     Dosage: 1 DF
  58. RANITIDINE [Concomitant]
     Active Substance: RANITIDINE
     Dosage: UNK
  59. RANITIDINE [Concomitant]
     Active Substance: RANITIDINE
     Dosage: 1 DF
  60. TORADOL [Concomitant]
     Active Substance: KETOROLAC TROMETHAMINE
     Dosage: UNK
  61. TORADOL [Concomitant]
     Active Substance: KETOROLAC TROMETHAMINE
     Dosage: 1 DF
  62. TRAZODONE [Concomitant]
     Active Substance: TRAZODONE HYDROCHLORIDE
     Dosage: UNK
  63. TRAZODONE [Concomitant]
     Active Substance: TRAZODONE HYDROCHLORIDE
     Dosage: 1 DF
  64. CHOLECALCIFEROL [Concomitant]
     Active Substance: CHOLECALCIFEROL
     Dosage: UNK
  65. CHOLECALCIFEROL [Concomitant]
     Active Substance: CHOLECALCIFEROL
     Dosage: 1 DF
  66. CALCIUM [Concomitant]
     Active Substance: CALCIUM
  67. CYMBALTA [Concomitant]
     Active Substance: DULOXETINE HYDROCHLORIDE
  68. DEXILANT [Concomitant]
     Active Substance: DEXLANSOPRAZOLE
  69. IRBESARTAN [Concomitant]
     Active Substance: IRBESARTAN
  70. POLYETHYLENE GLYCOL 3350\POTASSIUM CHLORIDE\SODIUM BICARBONATE\SODIUM [Concomitant]
     Active Substance: POLYETHYLENE GLYCOL 3350\POTASSIUM CHLORIDE\SODIUM BICARBONATE\SODIUM CHLORIDE\SODIUM SULFATE
  71. POLYETHYLENE GLYCOL 3350\POTASSIUM CHLORIDE\SODIUM BICARBONATE\SODIUM [Concomitant]
     Active Substance: POLYETHYLENE GLYCOL 3350\POTASSIUM CHLORIDE\SODIUM BICARBONATE\SODIUM CHLORIDE\SODIUM SULFATE
     Dosage: 1 DF
  72. MESALAMINE [Concomitant]
     Active Substance: MESALAMINE
  73. NABILONE [Concomitant]
     Active Substance: NABILONE
  74. TORADOL [Concomitant]
     Active Substance: KETOROLAC TROMETHAMINE
  75. VITAMIN D3 [Concomitant]
     Active Substance: CHOLECALCIFEROL
     Dosage: 1 DF
  76. VITAMIN D3 [Concomitant]
     Active Substance: CHOLECALCIFEROL
     Dosage: UNK

REACTIONS (22)
  - Ankylosing spondylitis [Not Recovered/Not Resolved]
  - Drug level above therapeutic [Not Recovered/Not Resolved]
  - Weight increased [Not Recovered/Not Resolved]
  - Arthritis [Not Recovered/Not Resolved]
  - Condition aggravated [Not Recovered/Not Resolved]
  - Ear pain [Not Recovered/Not Resolved]
  - Ear swelling [Not Recovered/Not Resolved]
  - Spondylitis [Not Recovered/Not Resolved]
  - Asthenia [Not Recovered/Not Resolved]
  - Cough [Not Recovered/Not Resolved]
  - Myalgia [Not Recovered/Not Resolved]
  - Arthralgia [Not Recovered/Not Resolved]
  - Nausea [Not Recovered/Not Resolved]
  - Arthralgia [Not Recovered/Not Resolved]
  - Fatigue [Not Recovered/Not Resolved]
  - Influenza [Not Recovered/Not Resolved]
  - Pyrexia [Not Recovered/Not Resolved]
  - Fatigue [Not Recovered/Not Resolved]
  - Therapeutic response shortened [Not Recovered/Not Resolved]
  - Off label use [Not Recovered/Not Resolved]
  - Inappropriate schedule of product administration [Not Recovered/Not Resolved]
  - Overdose [Unknown]

NARRATIVE: CASE EVENT DATE: 20220101
